FAERS Safety Report 10704375 (Version 1)
Quarter: 2014Q4

REPORT INFORMATION
  Report Type: Report from Study
  Country: US (occurrence: None)
  Receive Date: 20141224
  Receipt Date: 20141224
  Transmission Date: 20150529
  Serious: No
  Sender: FDA-Public Use
  Company Number: CABO-14004806

PATIENT
  Age: 49 Year
  Sex: Male

DRUGS (6)
  1. CALCIUM (CALCIUM) [Concomitant]
     Active Substance: CALCIUM
  2. COMETRIQ [Suspect]
     Active Substance: CABOZANTINIB S-MALATE
     Indication: THYROID CANCER
     Route: 048
     Dates: start: 20140905, end: 20140917
  3. VITAMIN B 12 (VITAMIN B12) [Concomitant]
  4. VITAMIN C [Concomitant]
     Active Substance: ASCORBIC ACID
  5. VITAMIN B (VITAMIN B COMPLEX) [Concomitant]
  6. SYNTHROID [Concomitant]
     Active Substance: LEVOTHYROXINE SODIUM

REACTIONS (5)
  - Asthenia [None]
  - Fatigue [None]
  - Weight decreased [None]
  - Dysphagia [None]
  - Blister [None]

NARRATIVE: CASE EVENT DATE: 2014
